FAERS Safety Report 6005519-8 (Version None)
Quarter: 2008Q4

REPORT INFORMATION
  Report Type: 
  Country: None (occurrence: None)
  Receive Date: 20081216
  Receipt Date: 20081216
  Transmission Date: 20090506
  Serious: Yes (Hospitalization, Other)
  Sender: FDA-Public Use
  Company Number: None

PATIENT
  Age: 52 Year
  Sex: Female
  Weight: 79 kg

DRUGS (8)
  1. GENERIC EPOPROSTENOL [Suspect]
     Indication: PULMONARY HYPERTENSION
     Dosage: 15 MG/KG/MIN IV CONT.
     Route: 042
     Dates: start: 20080826
  2. COUMADIN [Concomitant]
  3. DILTIAZEM [Concomitant]
  4. LASIX [Concomitant]
  5. POTASSIUM CHLORIDE [Concomitant]
  6. MAGNESIUM SULFATE [Concomitant]
  7. VICODEN [Concomitant]
  8. ACETAMINOPHEN [Concomitant]

REACTIONS (3)
  - ACTIVITIES OF DAILY LIVING IMPAIRED [None]
  - CHEST DISCOMFORT [None]
  - DYSPNOEA [None]
